FAERS Safety Report 5520212-3 (Version None)
Quarter: 2007Q4

REPORT INFORMATION
  Report Type: 
  Country: None (occurrence: None)
  Receive Date: 20071116
  Receipt Date: 20071109
  Transmission Date: 20080405
  Serious: Yes (Other)
  Sender: FDA-Public Use
  Company Number: US-GENENTECH-251350

PATIENT
  Age: 54 Year
  Sex: Male

DRUGS (3)
  1. AVASTIN [Suspect]
     Indication: PANCREATIC CARCINOMA METASTATIC
     Dosage: 7.5 MG/KG, Q3W
  2. OXALIPLATIN [Suspect]
     Indication: PANCREATIC CARCINOMA METASTATIC
     Dosage: 130 MG/M2, UNK
  3. S1 (FLUOROPYRIMIDINE) [Suspect]
     Dosage: 30 MG, UNK
     Route: 048

REACTIONS (1)
  - PNEUMATOSIS INTESTINALIS [None]
